FAERS Safety Report 19936335 (Version 6)
Quarter: 2023Q4

REPORT INFORMATION
  Report Type: Report from Study
  Country: US (occurrence: US)
  Receive Date: 20211009
  Receipt Date: 20231213
  Transmission Date: 20240110
  Serious: Yes (Other)
  Sender: FDA-Public Use
  Company Number: US-SHIRE-US201941802AA

PATIENT
  Age: 42 Year
  Sex: Female

DRUGS (2)
  1. HUMAN IMMUNOGLOBULIN G [Suspect]
     Active Substance: HUMAN IMMUNOGLOBULIN G
     Indication: Primary immunodeficiency syndrome
     Dosage: 15 GRAM, 2/WEEK
     Route: 065
  2. HUMAN IMMUNOGLOBULIN G [Suspect]
     Active Substance: HUMAN IMMUNOGLOBULIN G
     Dosage: 15 GRAM, Q2WEEKS
     Route: 065

REACTIONS (14)
  - Rectal haemorrhage [Unknown]
  - Autoimmune disorder [Unknown]
  - Neoplasm malignant [Unknown]
  - Vaginal haemorrhage [Unknown]
  - Blood test abnormal [Unknown]
  - Arthritis [Unknown]
  - COVID-19 [Unknown]
  - Illness [Unknown]
  - Cardiac disorder [Unknown]
  - Viral upper respiratory tract infection [Unknown]
  - Rotator cuff syndrome [Recovering/Resolving]
  - Breast mass [Unknown]
  - Nausea [Unknown]
  - Fatigue [Unknown]

NARRATIVE: CASE EVENT DATE: 20191202
